FAERS Safety Report 9563216 (Version 1)
Quarter: 2013Q3

REPORT INFORMATION
  Report Type: Spontaneous
  Country: US (occurrence: US)
  Receive Date: 20130927
  Receipt Date: 20130927
  Transmission Date: 20140515
  Serious: No
  Sender: FDA-Public Use
  Company Number: US-BRISTOL-MYERS SQUIBB COMPANY-19065929

PATIENT
  Age: 51 Year
  Sex: Male

DRUGS (5)
  1. ONGLYZA TABS [Suspect]
     Dosage: 07/2014, 02/2016
  2. GLIMEPIRIDE [Concomitant]
  3. VITAMIN D [Concomitant]
  4. LISINOPRIL [Concomitant]
  5. LOVAZA [Concomitant]

REACTIONS (2)
  - Weight increased [Unknown]
  - Blood triglycerides increased [Unknown]
